FAERS Safety Report 9000339 (Version 1)
Quarter: 2013Q1

REPORT INFORMATION
  Report Type: Spontaneous
  Country: US (occurrence: None)
  Receive Date: 20130102
  Receipt Date: 20130102
  Transmission Date: 20140127
  Serious: Yes (Hospitalization)
  Sender: FDA-Public Use
  Company Number: None

PATIENT
  Sex: Female
  Weight: 71 kg

DRUGS (1)
  1. CISPLATIN [Suspect]

REACTIONS (3)
  - Vomiting [None]
  - Blood urea increased [None]
  - Blood creatinine increased [None]
